FAERS Safety Report 8281521-0 (Version None)
Quarter: 2012Q2

REPORT INFORMATION
  Report Type: 
  Country: None (occurrence: None)
  Receive Date: 20120410
  Receipt Date: 20120328
  Transmission Date: 20120825
  Serious: Yes (Hospitalization)
  Sender: FDA-Public Use
  Company Number: AUR-APL-2012-01183

PATIENT
  Age: 73 Year
  Sex: Male

DRUGS (3)
  1. COLCHICINE [Concomitant]
  2. AMOXICILLIN [Suspect]
     Indication: GOUT
     Dosage: (1 GM, 1 D), ORAL
     Route: 048
     Dates: start: 20110820, end: 20110830
  3. BLOPRESS (CANDESARTAN CILEXETIL) [Concomitant]

REACTIONS (4)
  - DYSPNOEA [None]
  - METABOLIC ACIDOSIS [None]
  - RENAL FAILURE ACUTE [None]
  - DIARRHOEA [None]
